FAERS Safety Report 9668869 (Version 2)
Quarter: 2013Q4

REPORT INFORMATION
  Report Type: Report from Study
  Country: AR (occurrence: AR)
  Receive Date: 20131105
  Receipt Date: 20131105
  Transmission Date: 20140711
  Serious: Yes (Other)
  Sender: FDA-Public Use
  Company Number: PHHY2013AR060604

PATIENT
  Sex: Female

DRUGS (2)
  1. GILENYA [Suspect]
     Indication: MULTIPLE SCLEROSIS
     Dosage: 1 DF, QD
     Route: 048
     Dates: start: 201202
  2. TETANUS VACCINE [Suspect]

REACTIONS (5)
  - Disease progression [Not Recovered/Not Resolved]
  - Psychosomatic disease [Not Recovered/Not Resolved]
  - Posture abnormal [Recovering/Resolving]
  - Skin discolouration [Recovered/Resolved]
  - Rash [Recovered/Resolved]
